FAERS Safety Report 21148870 (Version 2)
Quarter: 2022Q3

REPORT INFORMATION
  Report Type: Other
  Country: GB (occurrence: GB)
  Receive Date: 20220729
  Receipt Date: 20220804
  Transmission Date: 20221027
  Serious: Yes (Hospitalization, Other)
  Sender: FDA-Public Use
  Company Number: None

PATIENT
  Age: 70 Year
  Sex: Male
  Weight: 90 kg

DRUGS (36)
  1. DICLOFENAC [Suspect]
     Active Substance: DICLOFENAC
     Indication: Plasma cell myeloma
     Dosage: 40 MILLIGRAM, ONCE A WEEK
     Route: 048
     Dates: start: 20161130
  2. DICLOFENAC [Suspect]
     Active Substance: DICLOFENAC
     Dosage: 6 MILLIGRAM, UNKNOWN
     Route: 065
  3. DICLOFENAC [Suspect]
     Active Substance: DICLOFENAC
     Dosage: 60 MILLIGRAM, UNKNOWN
     Route: 048
  4. DEXAMETHASONE [Suspect]
     Active Substance: DEXAMETHASONE
     Indication: Plasma cell myeloma
     Dosage: 40 MILLIGRAM, WEEKLY, TABLET (UNCOATED, ORAL)
     Route: 048
     Dates: start: 20161130, end: 20161214
  5. DEXAMETHASONE [Suspect]
     Active Substance: DEXAMETHASONE
     Dosage: 40 MILLIGRAM, ONCE
     Route: 042
     Dates: start: 20161214, end: 20161214
  6. DEXAMETHASONE [Suspect]
     Active Substance: DEXAMETHASONE
     Dosage: 40 MILLIGRAM, UNKNOWN (INJECTION)
     Route: 042
     Dates: start: 20161130, end: 20161214
  7. OMEPRAZOLE [Suspect]
     Active Substance: OMEPRAZOLE
     Indication: Plasma cell myeloma
     Dosage: 20 MILLIGRAM, UNKNOWN
     Route: 065
  8. REVLIMID [Suspect]
     Active Substance: LENALIDOMIDE
     Indication: Plasma cell myeloma
     Dosage: 525 MG, 28 D CYCLE, CAPSULE
     Route: 048
     Dates: start: 20161130
  9. REVLIMID [Suspect]
     Active Substance: LENALIDOMIDE
     Dosage: 25 MILLIGRAM, CYCLICAL (PER 28 DAY )
     Route: 048
     Dates: start: 20161130, end: 20161219
  10. REVLIMID [Suspect]
     Active Substance: LENALIDOMIDE
     Dosage: 25 MILLIGRAM, CAPSULE
     Route: 048
     Dates: start: 20161130, end: 20161219
  11. REVLIMID [Suspect]
     Active Substance: LENALIDOMIDE
     Dosage: 19 MILLIGRAM, CAPSULE
     Route: 048
  12. REVLIMID [Suspect]
     Active Substance: LENALIDOMIDE
     Dosage: UNK, CAPSULE
     Route: 065
     Dates: start: 20161214, end: 20161214
  13. REVLIMID [Suspect]
     Active Substance: LENALIDOMIDE
     Dosage: 25 MILLIGRAM EVERY 28 DAYS
     Route: 048
     Dates: start: 20161130
  14. DARATUMUMAB [Suspect]
     Active Substance: DARATUMUMAB
     Indication: Plasma cell myeloma
     Dosage: 1480 MILLIGRAM, ONCE A WEEK (CONCENTRATE FOR SOLUTION FOR INFUSION)
     Route: 041
     Dates: start: 20161130, end: 20161214
  15. DARATUMUMAB [Suspect]
     Active Substance: DARATUMUMAB
     Dosage: UNK, INJECTION
     Route: 065
     Dates: start: 20161214, end: 20161214
  16. ALLOPURINOL [Concomitant]
     Active Substance: ALLOPURINOL
     Indication: Chemotherapy
     Dosage: 300 MILLIGRAM, QD
     Route: 048
     Dates: start: 20161130
  17. AMOXICILLIN [Concomitant]
     Active Substance: AMOXICILLIN
     Indication: Product used for unknown indication
     Dosage: 3 GRAM, QD
     Route: 065
     Dates: start: 20170312, end: 20180316
  18. AMOXICILLIN [Concomitant]
     Active Substance: AMOXICILLIN
     Dosage: 3 UNK
     Route: 065
     Dates: start: 20170312, end: 20180316
  19. CHLORPHENIRAMINE MALEATE [Concomitant]
     Active Substance: CHLORPHENIRAMINE MALEATE
     Indication: Flushing
     Dosage: 10 MILLIGRAM, INJECTION
     Route: 065
     Dates: start: 20170309, end: 20170309
  20. CHLORPHENIRAMINE MALEATE [Concomitant]
     Active Substance: CHLORPHENIRAMINE MALEATE
     Dosage: 10 MILLIGRAM, INJECTION
     Route: 065
  21. CIPROFLOXACIN [Concomitant]
     Active Substance: CIPROFLOXACIN
     Indication: Product used for unknown indication
     Dosage: 500 MILLIGRAM/DAY, 1000 MILLIGRAM
     Route: 065
     Dates: start: 20170316, end: 20170606
  22. CIPROFLOXACIN [Concomitant]
     Active Substance: CIPROFLOXACIN
     Dosage: 1000 MILLIGRAM, QD
     Route: 065
     Dates: start: 20170316, end: 20170606
  23. AMOXICILLIN\CLAVULANATE POTASSIUM [Concomitant]
     Active Substance: AMOXICILLIN\CLAVULANATE POTASSIUM
     Indication: Product used for unknown indication
     Dosage: UNK
     Route: 065
  24. AMOXICILLIN\CLAVULANATE POTASSIUM [Concomitant]
     Active Substance: AMOXICILLIN\CLAVULANATE POTASSIUM
     Indication: Prophylaxis
     Dosage: 625 MILLIGRAM/DAY, 1875 MILLIGRAM
     Route: 065
     Dates: start: 20170316, end: 20171202
  25. ENSURE [Concomitant]
     Active Substance: AMINO ACIDS\DEXTROSE\ELECTROLYTES NOS\SOYBEAN OIL\VITAMINS
     Indication: Decreased appetite
     Dosage: UNK
     Route: 065
  26. ENSURE [Concomitant]
     Active Substance: AMINO ACIDS\DEXTROSE\ELECTROLYTES NOS\SOYBEAN OIL\VITAMINS
     Dosage: UNK
     Route: 065
     Dates: start: 20161230
  27. GENTAMICIN [Concomitant]
     Active Substance: GENTAMICIN
     Indication: Product used for unknown indication
     Dosage: 560 MILLIGRAM
     Route: 065
     Dates: start: 20170312, end: 20180515
  28. HYDROCORTISONE [Concomitant]
     Active Substance: HYDROCORTISONE
     Indication: Flushing
     Dosage: 100 MILLIGRAM, UNKNOWN
     Route: 065
     Dates: start: 20170309, end: 20170309
  29. HYDROCORTISONE [Concomitant]
     Active Substance: HYDROCORTISONE
     Dosage: 100 MILLIGRAM, UNKNOWN
     Route: 065
  30. METRONIDAZOLE [Concomitant]
     Active Substance: METRONIDAZOLE
     Indication: Product used for unknown indication
     Dosage: 1500 MILLIGRAM, UNKNOWN
     Route: 065
     Dates: start: 20170312, end: 20180315
  31. METRONIDAZOLE [Concomitant]
     Active Substance: METRONIDAZOLE
     Dosage: 500 MILLIGRAM/DAY, 1500 MG
     Route: 065
     Dates: start: 20170312, end: 20180315
  32. TAMSULOSIN [Concomitant]
     Active Substance: TAMSULOSIN
     Indication: Urinary retention
     Dosage: 400 MICROGRAM, UNKNOWN
     Route: 065
     Dates: start: 20170313
  33. PIPERACILLIN SODIUM\TAZOBACTAM SODIUM [Concomitant]
     Active Substance: PIPERACILLIN SODIUM\TAZOBACTAM SODIUM
     Indication: Pyrexia
     Dosage: 4.5 GRAM, UNKNOWN
     Route: 065
     Dates: start: 20170312, end: 20180312
  34. PIPERACILLIN SODIUM\TAZOBACTAM SODIUM [Concomitant]
     Active Substance: PIPERACILLIN SODIUM\TAZOBACTAM SODIUM
     Dosage: 4.5 GRAM, UNKNOWN
     Route: 065
  35. ZOMETA [Concomitant]
     Active Substance: ZOLEDRONIC ACID
     Indication: Product used for unknown indication
     Dosage: UNK
     Route: 065
     Dates: start: 20170113
  36. ZOMETA [Concomitant]
     Active Substance: ZOLEDRONIC ACID
     Dosage: UNK
     Route: 065
     Dates: start: 20170113

REACTIONS (5)
  - Hypoaesthesia [Not Recovered/Not Resolved]
  - Back pain [Recovered/Resolved]
  - Pulmonary embolism [Recovered/Resolved]
  - Diverticular perforation [Recovered/Resolved]
  - Off label use [Unknown]
